FAERS Safety Report 4327984-4 (Version None)
Quarter: 2004Q1

REPORT INFORMATION
  Report Type: 
  Country: None (occurrence: None)
  Receive Date: 20040325
  Receipt Date: 20040311
  Transmission Date: 20041129
  Serious: Yes (Disabling, Other)
  Sender: FDA-Public Use
  Company Number: 2004017478

PATIENT
  Sex: Female
  Weight: 107.0489 kg

DRUGS (7)
  1. NEURONTIN [Suspect]
     Indication: PAIN
     Dosage: 600 MG (DAILY), ORAL
     Route: 048
     Dates: start: 19991231
  2. ALL OTHER THERAPUEUTIC PRODUCT [Concomitant]
  3. POTASSIUM (POTASSIUM) [Concomitant]
  4. DIAZEPAM [Concomitant]
  5. ALPRAZOLAM [Concomitant]
  6. VICODIN [Concomitant]
  7. METHADONE HCL [Concomitant]

REACTIONS (2)
  - DEFORMITY [None]
  - HYPOAESTHESIA [None]
